FAERS Safety Report 6142148-X (Version None)
Quarter: 2009Q2

REPORT INFORMATION
  Report Type: 
  Country: None (occurrence: None)
  Receive Date: 20090402
  Receipt Date: 20090330
  Transmission Date: 20091009
  Serious: Yes (Hospitalization)
  Sender: FDA-Public Use
  Company Number: FR-MERCK-0903FRA00120

PATIENT
  Age: 87 Year
  Sex: Female

DRUGS (4)
  1. HYZAAR [Suspect]
     Indication: HYPERTENSION
     Route: 048
  2. CELIPROLOL HYDROCHLORIDE [Suspect]
     Route: 048
  3. LOPRAZOLAM MESYLATE [Suspect]
     Route: 048
  4. TRAMADOL HYDROCHLORIDE [Suspect]
     Indication: PAIN IN EXTREMITY
     Route: 048

REACTIONS (2)
  - FALL [None]
  - JOINT SPRAIN [None]
